FAERS Safety Report 9807803 (Version 2)
Quarter: 2014Q1

REPORT INFORMATION
  Report Type: Spontaneous
  Country: GB (occurrence: GB)
  Receive Date: 20140110
  Receipt Date: 20140124
  Transmission Date: 20141002
  Serious: Yes (Other)
  Sender: FDA-Public Use
  Company Number: GB-JNJFOC-20140100208

PATIENT
  Sex: Male

DRUGS (1)
  1. ABIRATERONE ACETATE [Suspect]
     Indication: PROSTATE CANCER
     Route: 048

REACTIONS (1)
  - Alanine aminotransferase increased [Unknown]
